FAERS Safety Report 6933785-0 (Version None)
Quarter: 2010Q3

REPORT INFORMATION
  Report Type: 
  Country: None (occurrence: None)
  Receive Date: 20100820
  Receipt Date: 20100806
  Transmission Date: 20110219
  Serious: Yes (Hospitalization, Other)
  Sender: FDA-Public Use
  Company Number: DE-MYLANLABS-2009S1004419

PATIENT
  Age: 70 Year
  Sex: Female
  Weight: 76 kg

DRUGS (10)
  1. CIPROFLOXACIN [Suspect]
     Indication: ABSCESS
     Route: 048
     Dates: start: 20080110, end: 20080124
  2. ALENDRONIC ACID [Concomitant]
     Indication: BONE PAIN
     Route: 048
     Dates: start: 20070101
  3. ASPIRIN [Concomitant]
     Indication: CORONARY ARTERY DISEASE
     Route: 048
     Dates: start: 20050101
  4. CALCIUM ACETATE [Concomitant]
     Indication: RENAL IMPAIRMENT
     Route: 048
     Dates: start: 20060101
  5. DIGITOXIN [Concomitant]
     Indication: ATRIAL FIBRILLATION
     Route: 048
     Dates: start: 20050101
  6. DREISAVIT N [Concomitant]
     Indication: VITAMIN SUPPLEMENTATION
     Route: 048
     Dates: start: 20050101
  7. HUMAN PROTAPHANE [Concomitant]
     Indication: DIABETES MELLITUS
     Route: 058
     Dates: start: 20040401
  8. METOHEXAL /00376902/ [Concomitant]
     Indication: ATRIAL FIBRILLATION
     Dates: start: 20050101
  9. SODIUM POLYSTYRENE SULFONATE [Concomitant]
     Indication: RENAL IMPAIRMENT
     Route: 048
     Dates: start: 20060101
  10. TRAMADOL [Concomitant]
     Indication: PAIN
     Route: 048
     Dates: start: 20070101

REACTIONS (1)
  - DIARRHOEA [None]
